FAERS Safety Report 5987064-9 (Version None)
Quarter: 2008Q4

REPORT INFORMATION
  Report Type: 
  Country: None (occurrence: None)
  Receive Date: 20081209
  Receipt Date: 20071219
  Transmission Date: 20090506
  Serious: No
  Sender: FDA-Public Use
  Company Number: A0699772A

PATIENT
  Age: 65 Year
  Sex: Female

DRUGS (8)
  1. AVANDAMET [Suspect]
     Dosage: 1TAB TWICE PER DAY
     Route: 048
     Dates: start: 20060701, end: 20070319
  2. SIMVASTATIN [Concomitant]
  3. LISINOPRIL [Concomitant]
  4. FLECAINIDE ACETATE [Concomitant]
  5. DIGITEK [Concomitant]
  6. ASPIRIN [Concomitant]
  7. CALCIUM [Concomitant]
  8. MULTI-VITAMIN [Concomitant]

REACTIONS (3)
  - ABDOMINAL PAIN UPPER [None]
  - DIARRHOEA [None]
  - WEIGHT INCREASED [None]
